FAERS Safety Report 19113029 (Version 3)
Quarter: 2023Q1

REPORT INFORMATION
  Report Type: Spontaneous
  Country: US (occurrence: None)
  Receive Date: 20210408
  Receipt Date: 20230228
  Transmission Date: 20230418
  Serious: Yes (Death, Other)
  Sender: FDA-Public Use
  Company Number: 2021A247571

PATIENT
  Sex: Female
  Weight: 56.7 kg

DRUGS (25)
  1. NEXIUM [Suspect]
     Active Substance: ESOMEPRAZOLE MAGNESIUM
     Indication: Gastrooesophageal reflux disease
     Route: 048
     Dates: start: 2008, end: 2011
  2. NEXIUM [Suspect]
     Active Substance: ESOMEPRAZOLE MAGNESIUM
     Indication: Gastrooesophageal reflux disease
     Route: 048
     Dates: start: 2010, end: 2015
  3. DOCQLACE [Concomitant]
     Active Substance: DOCUSATE SODIUM
  4. LEVETIRACETAM [Concomitant]
     Active Substance: LEVETIRACETAM
  5. BUTALBITAL [Concomitant]
     Active Substance: BUTALBITAL
  6. GABAPENTIN [Concomitant]
     Active Substance: GABAPENTIN
  7. VOLTAREN [Concomitant]
     Active Substance: DICLOFENAC SODIUM
  8. MITRAZEPINE [Concomitant]
  9. PROAIR HFA [Concomitant]
     Active Substance: ALBUTEROL SULFATE
  10. IPRATRPIUM [Concomitant]
  11. FLOVENT [Concomitant]
     Active Substance: FLUTICASONE PROPIONATE
  12. TRIAMCINOLONE [Concomitant]
     Active Substance: TRIAMCINOLONE
  13. VITAMIN D [Concomitant]
     Active Substance: VITAMIN D NOS
  14. NIMOTOP [Concomitant]
     Active Substance: NIMODIPINE
  15. COMBIVENT [Concomitant]
     Active Substance: ALBUTEROL SULFATE\IPRATROPIUM BROMIDE
  16. ATROVENT [Concomitant]
     Active Substance: IPRATROPIUM BROMIDE
  17. DUONEB [Concomitant]
     Active Substance: ALBUTEROL SULFATE\IPRATROPIUM BROMIDE
  18. PERCOCET [Concomitant]
     Active Substance: ACETAMINOPHEN\OXYCODONE HYDROCHLORIDE
  19. LEXAPRO [Concomitant]
     Active Substance: ESCITALOPRAM OXALATE
  20. COLACE [Concomitant]
     Active Substance: DOCUSATE SODIUM
  21. KEPPRA [Concomitant]
     Active Substance: LEVETIRACETAM
  22. ONDANSETRON [Concomitant]
     Active Substance: ONDANSETRON
  23. GUAIFENESIN [Concomitant]
     Active Substance: GUAIFENESIN
  24. XYLOCAIN [Concomitant]
  25. CHLORPHENRAMINE [Concomitant]

REACTIONS (5)
  - Death [Fatal]
  - Acute kidney injury [Not Recovered/Not Resolved]
  - Chronic kidney disease [Not Recovered/Not Resolved]
  - Renal failure [Unknown]
  - Rebound acid hypersecretion [Unknown]
